FAERS Safety Report 13005020 (Version 1)
Quarter: 2016Q4

REPORT INFORMATION
  Report Type: Spontaneous
  Country: US (occurrence: US)
  Receive Date: 20161207
  Receipt Date: 20161207
  Transmission Date: 20170207
  Serious: No
  Sender: FDA-Public Use
  Company Number: US-PFIZER INC-2016487262

PATIENT
  Age: 66 Year
  Sex: Female

DRUGS (1)
  1. LYRICA [Suspect]
     Active Substance: PREGABALIN

REACTIONS (4)
  - Poor quality drug administered [Unknown]
  - Incorrect product storage [Unknown]
  - Dysgeusia [Unknown]
  - Product outer packaging issue [Unknown]
